FAERS Safety Report 5421812-1 (Version None)
Quarter: 2007Q3

REPORT INFORMATION
  Report Type: 
  Country: None (occurrence: None)
  Receive Date: 20070820
  Receipt Date: 20070809
  Transmission Date: 20080115
  Serious: Yes (Hospitalization)
  Sender: FDA-Public Use
  Company Number: 163-21880-06050171

PATIENT
  Age: 57 Year
  Sex: Female

DRUGS (6)
  1. REVLIMID [Suspect]
     Indication: MYELODYSPLASTIC SYNDROME
     Dosage: 25 MG, QD X 21, ORAL; 10 MG, DAILY, ORAL; 25 MG, QD X 21, ORAL
     Route: 048
     Dates: start: 20060303, end: 20060601
  2. REVLIMID [Suspect]
     Indication: MYELODYSPLASTIC SYNDROME
     Dosage: 25 MG, QD X 21, ORAL; 10 MG, DAILY, ORAL; 25 MG, QD X 21, ORAL
     Route: 048
     Dates: start: 20070103, end: 20070101
  3. REVLIMID [Suspect]
     Indication: MYELODYSPLASTIC SYNDROME
     Dosage: 25 MG, QD X 21, ORAL; 10 MG, DAILY, ORAL; 25 MG, QD X 21, ORAL
     Route: 048
     Dates: start: 20070511
  4. REVLIMID [Suspect]
  5. DECADRON [Concomitant]
  6. ZOMETA [Concomitant]

REACTIONS (8)
  - ARTHRITIS [None]
  - BLOOD CALCIUM DECREASED [None]
  - BLOOD ELECTROLYTES DECREASED [None]
  - DECREASED APPETITE [None]
  - HAEMOGLOBIN DECREASED [None]
  - PLATELET COUNT DECREASED [None]
  - SINUSITIS [None]
  - WHITE BLOOD CELL COUNT DECREASED [None]
